FAERS Safety Report 9147817 (Version 2)
Quarter: 2013Q2

REPORT INFORMATION
  Report Type: Spontaneous
  Country: JP (occurrence: JP)
  Receive Date: 20130307
  Receipt Date: 20130423
  Transmission Date: 20140414
  Serious: Yes (Hospitalization)
  Sender: FDA-Public Use
  Company Number: JP-ELI_LILLY_AND_COMPANY-JP201302005871

PATIENT
  Age: 72 Year
  Sex: Male
  Weight: 74 kg

DRUGS (5)
  1. ALIMTA [Suspect]
     Indication: LUNG ADENOCARCINOMA
     Dosage: 850 MG, UNK
     Route: 042
     Dates: start: 20130124, end: 20130214
  2. DECADRON                                /CAN/ [Concomitant]
     Indication: PROPHYLAXIS OF NAUSEA AND VOMITING
     Dosage: 6.6 MG, UNK
     Route: 042
     Dates: start: 20130124, end: 20130214
  3. WARFARIN [Concomitant]
     Indication: ATRIAL FIBRILLATION
     Dosage: 2 MG, UNK
     Route: 048
  4. FRESMIN S [Concomitant]
     Dosage: 1000 UG, UNK
     Dates: start: 20130117
  5. FOLIC ACID [Concomitant]

REACTIONS (1)
  - Cardiac failure congestive [Recovering/Resolving]
